FAERS Safety Report 12263557 (Version 1)
Quarter: 2016Q2

REPORT INFORMATION
  Report Type: Spontaneous
  Country: US (occurrence: US)
  Receive Date: 20160413
  Receipt Date: 20160413
  Transmission Date: 20160815
  Serious: No
  Sender: FDA-Public Use
  Company Number: US-JNJFOC-20160308092

PATIENT
  Age: 72 Year
  Sex: Female
  Weight: 88.91 kg

DRUGS (2)
  1. TYLENOL 8 HR ARTHRITIS PAIN [Suspect]
     Active Substance: ACETAMINOPHEN
     Indication: ARTHRITIS
     Route: 065
     Dates: start: 20160306
  2. TYLENOL 8 HR ARTHRITIS PAIN [Suspect]
     Active Substance: ACETAMINOPHEN
     Route: 065

REACTIONS (5)
  - Product packaging issue [Unknown]
  - Product label issue [Unknown]
  - Product expiration date issue [None]
  - Product package associated injury [Recovering/Resolving]
  - Product closure removal difficult [Unknown]

NARRATIVE: CASE EVENT DATE: 20160306
